FAERS Safety Report 11835460 (Version 1)
Quarter: 2015Q4

REPORT INFORMATION
  Report Type: Spontaneous
  Country: US (occurrence: None)
  Receive Date: 20151214
  Receipt Date: 20151214
  Transmission Date: 20160305
  Serious: Yes (Life-Threatening)
  Sender: FDA-Public Use
  Company Number: None

PATIENT
  Age: 48 Year
  Sex: Female
  Weight: 54.43 kg

DRUGS (7)
  1. BROMOLINE [Concomitant]
  2. D3 [Concomitant]
     Active Substance: 25-HYDROXYCHOLECALCIFEROL, 5-TRANS-
  3. GABA AMINO ACID [Concomitant]
  4. AMPHETAMINE SALTS 30MG AUROBINDO [Suspect]
     Active Substance: AMPHETAMINE ASPARTATE\AMPHETAMINE SULFATE\DEXTROAMPHETAMINE SACCHARATE\DEXTROAMPHETAMINE SULFATE
     Indication: ATTENTION DEFICIT/HYPERACTIVITY DISORDER
     Dosage: 1/2 TABLET TWICE DAILY
     Route: 048
     Dates: start: 20151210, end: 20151212
  5. ADDERALL [Concomitant]
     Active Substance: AMPHETAMINE ASPARTATE\AMPHETAMINE SULFATE\DEXTROAMPHETAMINE SACCHARATE\DEXTROAMPHETAMINE SULFATE
  6. VITAMIN B12 [Concomitant]
     Active Substance: CYANOCOBALAMIN
  7. TURMERIC [Concomitant]
     Active Substance: TURMERIC

REACTIONS (8)
  - Drug effect decreased [None]
  - Impaired driving ability [None]
  - Product substitution issue [None]
  - Anger [None]
  - Irritability [None]
  - Product shape issue [None]
  - Emotional disorder [None]
  - Product size issue [None]

NARRATIVE: CASE EVENT DATE: 20151212
